FAERS Safety Report 14553753 (Version 1)
Quarter: 2018Q1

REPORT INFORMATION
  Report Type: Spontaneous
  Country: US (occurrence: US)
  Receive Date: 20180220
  Receipt Date: 20180220
  Transmission Date: 20180509
  Serious: Yes (Other)
  Sender: FDA-Public Use
  Company Number: US-RARE DISEASE THERAPEUTICS, INC.-2042303

PATIENT
  Age: 4 Year
  Sex: Male
  Weight: 17.35 kg

DRUGS (9)
  1. MIRALAX [Concomitant]
     Active Substance: POLYETHYLENE GLYCOL 3350
  2. VINCRISTINE SULFATE. [Concomitant]
     Active Substance: VINCRISTINE SULFATE
  3. MULTIVITAMIN WITH FLUORIDE [Concomitant]
     Active Substance: .ALPHA.-TOCOPHEROL\.ALPHA.-TOCOPHEROL ACETATE\.ALPHA.-TOCOPHEROL ACETATE, DL-\ASCORBIC ACID\CHOLECALCIFEROL\COBALAMIN\CYANOCOBALAMIN\FLUORIDE ION\FOLIC ACID\NIACIN\NIACINAMIDE\PYRIDOXINE\PYRIDOXINE HYDROCHLORIDE\RIBOFLAVIN\SODIUM ASCORBATE\SODIUM FLUORIDE\THIAMINE\THIAMINE MONONITRATE\VITAMIN A\VITA
  4. ZOFRAN [Concomitant]
     Active Substance: ONDANSETRON HYDROCHLORIDE
  5. DEXAMETHASONE. [Concomitant]
     Active Substance: DEXAMETHASONE
  6. PURIXAN [Suspect]
     Active Substance: MERCAPTOPURINE
     Indication: ACUTE LYMPHOCYTIC LEUKAEMIA
     Route: 048
     Dates: start: 20170124, end: 20180206
  7. RANITIDINE. [Concomitant]
     Active Substance: RANITIDINE
  8. METHOTREXATE. [Suspect]
     Active Substance: METHOTREXATE
  9. PENTAM [Concomitant]
     Active Substance: PENTAMIDINE ISETHIONATE

REACTIONS (5)
  - Ocular icterus [Not Recovered/Not Resolved]
  - Aspartate aminotransferase increased [Unknown]
  - Blood bilirubin increased [Unknown]
  - Alanine aminotransferase increased [Unknown]
  - Pyrexia [Recovered/Resolved]

NARRATIVE: CASE EVENT DATE: 20180202
